FAERS Safety Report 19089256 (Version 1)
Quarter: 2021Q2

REPORT INFORMATION
  Report Type: Spontaneous
  Country: US (occurrence: US)
  Receive Date: 20210403
  Receipt Date: 20210403
  Transmission Date: 20210717
  Serious: No
  Sender: FDA-Public Use
  Company Number: US-UNITED THERAPEUTICS-UNT-2021-005776

PATIENT
  Sex: Male

DRUGS (1)
  1. UNITUXIN [Suspect]
     Active Substance: DINUTUXIMAB
     Indication: NEUROBLASTOMA
     Dosage: UNK, CYCLICAL
     Route: 041
     Dates: start: 202012

REACTIONS (2)
  - Anal incontinence [Unknown]
  - Urinary incontinence [Unknown]
